FAERS Safety Report 7590986-9 (Version None)
Quarter: 2011Q3

REPORT INFORMATION
  Report Type: 
  Country: None (occurrence: None)
  Receive Date: 20110705
  Receipt Date: 20110630
  Transmission Date: 20111222
  Serious: Yes (Hospitalization)
  Sender: FDA-Public Use
  Company Number: PHHY2011US58717

PATIENT
  Age: 16 Year
  Sex: Female

DRUGS (1)
  1. TOBI [Suspect]
     Dosage: 300 MG, BID VIA NEBULISER IN A CYCLE OF 28 DAYS ON AND 28 DAY OFF
     Dates: start: 20100309

REACTIONS (1)
  - PSEUDOMONAS INFECTION [None]
